FAERS Safety Report 4708610-9 (Version None)
Quarter: 2005Q3

REPORT INFORMATION
  Report Type: 
  Country: None (occurrence: None)
  Receive Date: 20050706
  Receipt Date: 20050621
  Transmission Date: 20060218
  Serious: Yes (Hospitalization, Other)
  Sender: FDA-Public Use
  Company Number: 2005BI001677

PATIENT
  Age: 47 Year
  Sex: Male
  Weight: 66.6788 kg

DRUGS (11)
  1. AVONEX [Suspect]
     Indication: MULTIPLE SCLEROSIS
     Dosage: 30 UG; QW; IM
     Route: 030
     Dates: start: 20040401
  2. NEXIUM [Concomitant]
  3. DARVOCET [Concomitant]
  4. NORTRIPTYLINE HCL [Concomitant]
  5. AMBIEN [Concomitant]
  6. PROVIGIL [Concomitant]
  7. METOPROLOL [Concomitant]
  8. LISINOPRIL [Concomitant]
  9. PLAVIX [Concomitant]
  10. PROTONIX [Concomitant]
  11. PERCOCET [Concomitant]

REACTIONS (17)
  - BLOOD CHOLESTEROL INCREASED [None]
  - BLOOD GLUCOSE INCREASED [None]
  - BLOOD PRESSURE INCREASED [None]
  - BLOOD SODIUM DECREASED [None]
  - CARDIAC STRESS TEST ABNORMAL [None]
  - CARDIOMYOPATHY [None]
  - CORONARY ARTERY OCCLUSION [None]
  - FATIGUE [None]
  - HYPOKALAEMIA [None]
  - HYPOMAGNESAEMIA [None]
  - INFLUENZA LIKE ILLNESS [None]
  - INSOMNIA [None]
  - LDL/HDL RATIO DECREASED [None]
  - MYOCARDIAL INFARCTION [None]
  - PCO2 DECREASED [None]
  - THERAPY NON-RESPONDER [None]
  - WEIGHT DECREASED [None]
